FAERS Safety Report 9893393 (Version 6)
Quarter: 2014Q2

REPORT INFORMATION
  Report Type: Spontaneous
  Country: US (occurrence: US)
  Receive Date: 20140213
  Receipt Date: 20140529
  Transmission Date: 20141212
  Serious: Yes (Hospitalization, Other)
  Sender: FDA-Public Use
  Company Number: US-009507513-1402USA005755

PATIENT
  Sex: Female
  Weight: 45 kg

DRUGS (3)
  1. JANUMET [Suspect]
     Indication: TYPE 2 DIABETES MELLITUS
     Dosage: 50/1000 MG, QD
     Route: 048
     Dates: start: 20110717
  2. JANUMET [Suspect]
     Dosage: 50/1000 MG,0.5 TAB BID
     Route: 048
     Dates: start: 20110717
  3. JANUVIA [Suspect]
     Indication: TYPE 2 DIABETES MELLITUS
     Dosage: 50 MG, QD
     Route: 048
     Dates: start: 20110412, end: 20110708

REACTIONS (39)
  - Adenocarcinoma pancreas [Recovered/Resolved]
  - Pancreatic carcinoma recurrent [Unknown]
  - Pancreaticoduodenectomy [Recovering/Resolving]
  - Hepatic cirrhosis [Unknown]
  - Cyst [Unknown]
  - Bile duct stone [Unknown]
  - Deafness bilateral [Unknown]
  - Open reduction of fracture [Unknown]
  - Blood cholesterol increased [Unknown]
  - Blood cholesterol abnormal [Unknown]
  - Bile duct stent insertion [Unknown]
  - Pancreatic mass [Unknown]
  - Impaired healing [Unknown]
  - Pancreatic insufficiency [Unknown]
  - Steatorrhoea [Unknown]
  - Incorrect drug administration duration [Unknown]
  - Memory impairment [Unknown]
  - Gastrooesophageal reflux disease [Unknown]
  - Hyperlipidaemia [Unknown]
  - Osteoarthritis [Unknown]
  - Tonsillectomy [Unknown]
  - Soft tissue mass [Unknown]
  - Anxiety [Recovered/Resolved]
  - Malabsorption [Unknown]
  - Sinus headache [Unknown]
  - Dry skin [Unknown]
  - Night sweats [Unknown]
  - Superior mesenteric artery syndrome [Unknown]
  - Spinal compression fracture [Unknown]
  - Hypertension [Unknown]
  - Hypothyroidism [Unknown]
  - Wrong technique in drug usage process [Unknown]
  - Urinary tract infection [Unknown]
  - Vertebroplasty [Unknown]
  - Gout [Unknown]
  - Joint swelling [Unknown]
  - Diarrhoea [Unknown]
  - Diarrhoea [Unknown]
  - Back pain [Recovering/Resolving]
